FAERS Safety Report 6590755-2 (Version None)
Quarter: 2010Q1

REPORT INFORMATION
  Report Type: 
  Country: None (occurrence: None)
  Receive Date: 20100212
  Receipt Date: 20100125
  Transmission Date: 20100710
  Serious: Yes (Other)
  Sender: FDA-Public Use
  Company Number: 340001J10USA

PATIENT
  Age: 35 Year
  Sex: Female

DRUGS (2)
  1. OVIDREL [Suspect]
     Indication: INFERTILITY FEMALE
     Dosage: NOT REPORTED, NOT REPORTED, NOT
     Dates: start: 20090101, end: 20090101
  2. GONAL-F [Suspect]
     Indication: INFERTILITY
     Dosage: NOT REPORTED, NOT REPORTED, NOT
     Dates: start: 20090101, end: 20090101

REACTIONS (3)
  - ABORTION SPONTANEOUS [None]
  - DRUG EXPOSURE DURING PREGNANCY [None]
  - PREGNANCY [None]
